FAERS Safety Report 9919759 (Version 5)
Quarter: 2014Q4

REPORT INFORMATION
  Report Type: Spontaneous
  Country: US (occurrence: US)
  Receive Date: 20140224
  Receipt Date: 20141017
  Transmission Date: 20150529
  Serious: Yes (Death, Hospitalization, Other)
  Sender: FDA-Public Use
  Company Number: US-GLAXOSMITHKLINE-A1062054A

PATIENT
  Age: 51 Year
  Sex: Male

DRUGS (13)
  1. MULTIVITAMIN [Concomitant]
     Active Substance: VITAMINS
  2. POTASSIUM [Concomitant]
     Active Substance: POTASSIUM
  3. PAIN MEDICATION [Concomitant]
     Active Substance: UNSPECIFIED INGREDIENT
  4. COREG CR [Suspect]
     Active Substance: CARVEDILOL PHOSPHATE
     Indication: CARDIAC DISORDER
     Dosage: UNK
     Route: 048
     Dates: start: 201109
  5. SPIRONOLACTONE. [Concomitant]
     Active Substance: SPIRONOLACTONE
  6. MORPHINE [Concomitant]
     Active Substance: MORPHINE
  7. UNSPECIFIED MEDICATION [Concomitant]
     Active Substance: UNSPECIFIED INGREDIENT
     Indication: NAUSEA
  8. LASIX [Concomitant]
     Active Substance: FUROSEMIDE
  9. ENALAPRIL [Concomitant]
     Active Substance: ENALAPRIL
  10. COREG [Suspect]
     Active Substance: CARVEDILOL
     Indication: CARDIAC DISORDER
     Dosage: 12.5 MG TABLETS. UNKNOWN DOSING.PREVIOUSLY ^ON 6.25 MG START DATE 4/6/11.^12.5 MG TWICE DAILY
     Route: 048
     Dates: start: 201101
  11. XANAX [Concomitant]
     Active Substance: ALPRAZOLAM
  12. MAGNESIUM [Concomitant]
     Active Substance: MAGNESIUM
  13. ADVAIR HFA [Concomitant]
     Active Substance: FLUTICASONE PROPIONATE\SALMETEROL XINAFOATE
     Dosage: 100/50 START DATE 25JUN2009.250/50 START DATE 07JUL2010.

REACTIONS (11)
  - Ascites [Not Recovered/Not Resolved]
  - Weight decreased [Not Recovered/Not Resolved]
  - Oesophageal carcinoma [Not Recovered/Not Resolved]
  - Palpitations [Unknown]
  - Neoplasm malignant [Unknown]
  - Peripheral swelling [Not Recovered/Not Resolved]
  - Investigation [Unknown]
  - Gastric cancer [Fatal]
  - Dyspnoea [Unknown]
  - Dehydration [Not Recovered/Not Resolved]
  - Abdominal pain upper [Not Recovered/Not Resolved]

NARRATIVE: CASE EVENT DATE: 201210
